FAERS Safety Report 19274366 (Version 4)
Quarter: 2021Q2

REPORT INFORMATION
  Report Type: Spontaneous
  Country: JP (occurrence: JP)
  Receive Date: 20210519
  Receipt Date: 20210625
  Transmission Date: 20210717
  Serious: Yes (Hospitalization, Other)
  Sender: FDA-Public Use
  Company Number: JP-GLAXOSMITHKLINE-JP2021JPN060617

PATIENT
  Age: 37 Year
  Sex: Female

DRUGS (3)
  1. NUCALA [Suspect]
     Active Substance: MEPOLIZUMAB
     Indication: ASTHMA
     Dosage: 100 MG
     Route: 058
     Dates: start: 20210308, end: 20210406
  2. PULMICORT TURBUHALER [Suspect]
     Active Substance: BUDESONIDE
     Indication: ASTHMA
     Dosage: 1000 ?G
     Route: 055
     Dates: start: 20210126, end: 20210419
  3. MEDICON (DEXTROMETHORPHAN HYDROBROMIDE HYDRATE) [Suspect]
     Active Substance: DEXTROMETHORPHAN HYDROBROMIDE
     Indication: ASTHMA
     Dosage: 120 MG
     Route: 048
     Dates: start: 20210126, end: 20210419

REACTIONS (5)
  - Malignant mediastinal neoplasm [Unknown]
  - Premature delivery [Unknown]
  - Respiratory failure [Unknown]
  - Asthma [Unknown]
  - Exposure during pregnancy [Unknown]

NARRATIVE: CASE EVENT DATE: 202104
